FAERS Safety Report 16510904 (Version 1)
Quarter: 2019Q3

REPORT INFORMATION
  Report Type: Spontaneous
  Country: US (occurrence: US)
  Receive Date: 20190702
  Receipt Date: 20190702
  Transmission Date: 20191004
  Serious: No
  Sender: FDA-Public Use
  Company Number: US-ACCORD-067808

PATIENT
  Sex: Female

DRUGS (1)
  1. ALLOPURINOL. [Suspect]
     Active Substance: ALLOPURINOL
     Indication: GOUT
     Dosage: STRENGTH: 100 MG?50 MG IN THE MORNING AND 100 MG AT NIGHT
     Route: 048

REACTIONS (5)
  - Drug ineffective [Unknown]
  - Myalgia [Unknown]
  - Back pain [Unknown]
  - Tinnitus [Unknown]
  - Dyspepsia [Unknown]
